FAERS Safety Report 8643780 (Version 4)
Quarter: 2012Q4

REPORT INFORMATION
  Report Type: 
  Country: JP (occurrence: JP)
  Receive Date: 20120629
  Receipt Date: 20120912
  Transmission Date: 20130627
  Serious: Yes (Hospitalization, Other)
  Sender: FDA-Public Use
  Company Number: JP-PFIZER INC-2012153682

PATIENT
  Age: 4 Year
  Sex: Male
  Weight: 16.5 kg

DRUGS (3)
  1. GENOTROPIN GOQUICK [Suspect]
     Indication: BODY HEIGHT BELOW NORMAL
     Dosage: 0.6mg or 0.75mg, 1x/day
     Route: 058
     Dates: start: 20120622, end: 20120625
  2. GENOTROPIN GOQUICK [Suspect]
     Dosage: 0.6 mg, 1x/day, 6 days/week
     Dates: start: 201206
  3. AMOXICILLIN SODIUM [Suspect]
     Indication: PYREXIA
     Dosage: 0.83 g, 1x/day
     Route: 048
     Dates: start: 20120626, end: 20120626

REACTIONS (1)
  - Febrile convulsion [Recovered/Resolved]
